FAERS Safety Report 9813852 (Version 2)
Quarter: 2014Q2

REPORT INFORMATION
  Report Type: Spontaneous
  Country: IE (occurrence: IE)
  Receive Date: 20140113
  Receipt Date: 20140407
  Transmission Date: 20141212
  Serious: Yes (Hospitalization)
  Sender: FDA-Public Use
  Company Number: US-ASTRAZENECA-2014SE01687

PATIENT
  Age: 87 Day
  Sex: Female

DRUGS (3)
  1. SYNAGIS [Suspect]
     Route: 030
  2. PROPRANOLOL [Concomitant]
     Dosage: FOUR TIMES A DAY
  3. AMIODARONE [Concomitant]
     Dosage: EVERY DAY

REACTIONS (2)
  - Heart rate abnormal [Unknown]
  - Gastrointestinal disorder [Unknown]
